FAERS Safety Report 17668920 (Version 1)
Quarter: 2020Q2

REPORT INFORMATION
  Report Type: Spontaneous
  Country: US (occurrence: US)
  Receive Date: 20200415
  Receipt Date: 20200415
  Transmission Date: 20200713
  Serious: No
  Sender: FDA-Public Use
  Company Number: US-DRREDDYS-USA/USA/20/0121855

PATIENT
  Age: 26 Year
  Sex: Male
  Weight: 81 kg

DRUGS (1)
  1. FEXOFENADINE HCL [Suspect]
     Active Substance: FEXOFENADINE HYDROCHLORIDE
     Indication: HYPERSENSITIVITY
     Route: 048
     Dates: start: 20200404

REACTIONS (4)
  - Drug ineffective [Unknown]
  - Headache [Unknown]
  - Abdominal pain upper [Unknown]
  - Product quality issue [Unknown]
